FAERS Safety Report 17662132 (Version 1)
Quarter: 2020Q2

REPORT INFORMATION
  Report Type: Spontaneous
  Country: RU (occurrence: RU)
  Receive Date: 20200413
  Receipt Date: 20200413
  Transmission Date: 20200713
  Serious: Yes (Hospitalization)
  Sender: FDA-Public Use
  Company Number: NVSC2020RU098331

PATIENT
  Age: 24 Year
  Sex: Female

DRUGS (4)
  1. PERSEN [Concomitant]
     Indication: SUICIDE ATTEMPT
     Dosage: UNK, QD
     Route: 048
     Dates: start: 20200403, end: 20200403
  2. CODELAC BRONCHO [Concomitant]
     Indication: SUICIDE ATTEMPT
     Dosage: UNK, QD
     Route: 048
     Dates: start: 20200403, end: 20200403
  3. NIMESULIDE [Concomitant]
     Active Substance: NIMESULIDE
     Indication: SUICIDE ATTEMPT
     Dosage: UNK, QD
     Route: 048
     Dates: start: 20200403, end: 20200403
  4. AMOXICILLIN, CLAVULANIC ACID [Suspect]
     Active Substance: AMOXICILLIN\CLAVULANIC ACID
     Indication: SUICIDE ATTEMPT
     Dosage: UNK, QD
     Route: 048
     Dates: start: 20200403, end: 20200403

REACTIONS (4)
  - Dizziness [Unknown]
  - Headache [Unknown]
  - Diplopia [Unknown]
  - Suicide attempt [Unknown]

NARRATIVE: CASE EVENT DATE: 20200403
